FAERS Safety Report 6636817-2 (Version None)
Quarter: 2010Q1

REPORT INFORMATION
  Report Type: 
  Country: None (occurrence: None)
  Receive Date: 20100316
  Receipt Date: 20100303
  Transmission Date: 20100710
  Serious: Yes (Hospitalization)
  Sender: FDA-Public Use
  Company Number: GB-ELI_LILLY_AND_COMPANY-GB201003001252

PATIENT
  Sex: Female
  Weight: 54.2 kg

DRUGS (13)
  1. GEMCITABINE HCL [Suspect]
     Indication: DIFFUSE LARGE B-CELL LYMPHOMA
     Dosage: 1121 MG, DAYS 1 AND 8
     Route: 042
     Dates: start: 20100211
  2. CYCLOPHOSPHAMIDE [Suspect]
     Indication: DIFFUSE LARGE B-CELL LYMPHOMA
     Dosage: 1100 MG, DAY 1
     Route: 042
     Dates: start: 20100211
  3. VINCRISTINE [Suspect]
     Indication: DIFFUSE LARGE B-CELL LYMPHOMA
     Dosage: 2 MG, DAY 1
     Route: 042
     Dates: start: 20100211
  4. RITUXIMAB [Suspect]
     Indication: DIFFUSE LARGE B-CELL LYMPHOMA
     Dosage: 560 MG, DAY 1
     Route: 042
     Dates: start: 20100211
  5. OTHER PHARMA COMPANY INV DRUG [Suspect]
     Indication: DIFFUSE LARGE B-CELL LYMPHOMA
     Dosage: 100 MG, DAYS 1-5
     Route: 048
     Dates: start: 20100211
  6. PEGFILGRASTIM [Suspect]
     Indication: DIFFUSE LARGE B-CELL LYMPHOMA
     Dosage: 6 MG, DAY 9
     Route: 058
     Dates: start: 20100219
  7. ALLOPURINOL [Concomitant]
     Indication: HYPERURICAEMIA
     Dosage: 300 MG, DAILY (1/D)
     Route: 048
     Dates: end: 20100228
  8. COTRIMOXAZOLE [Concomitant]
     Indication: ANTIBIOTIC THERAPY
     Dosage: 480 MG, ALTERNATE DAYS
     Route: 048
     Dates: start: 20100301
  9. FLUCONAZOLE [Concomitant]
     Indication: ANTIFUNGAL TREATMENT
     Dosage: 100 MG, 2/D
     Route: 048
     Dates: start: 20100227
  10. LANSOPRAZOLE [Concomitant]
     Indication: ANTACID THERAPY
     Dosage: 30 MG, DAILY (1/D)
     Route: 048
     Dates: start: 20100227
  11. NIFEDIPINE [Concomitant]
     Indication: HYPERTENSION
     Dosage: 20 MG, DAILY (1/D)
     Route: 048
     Dates: end: 20100301
  12. SERTRALINE HCL [Concomitant]
     Indication: DEPRESSION
     Dosage: 50 MG, DAILY (1/D)
     Route: 048
  13. CORSODYL [Concomitant]
     Dosage: 10 ML, 2/D
     Route: 048
     Dates: start: 20100226

REACTIONS (2)
  - PANCYTOPENIA [None]
  - VARICELLA [None]
